FAERS Safety Report 5456561-7 (Version None)
Quarter: 2007Q3

REPORT INFORMATION
  Report Type: 
  Country: None (occurrence: None)
  Receive Date: 20070918
  Receipt Date: 20070912
  Transmission Date: 20080115
  Serious: Yes (Hospitalization)
  Sender: FDA-Public Use
  Company Number: B0487417A

PATIENT
  Age: 10 Year
  Sex: Female

DRUGS (5)
  1. AUGMENTIN '125' [Suspect]
     Indication: ACUTE TONSILLITIS
     Dosage: 625MG THREE TIMES PER DAY
     Route: 048
     Dates: start: 20070725
  2. DALACIN [Concomitant]
     Dosage: 300MG THREE TIMES PER DAY
     Route: 048
  3. ENDIARON [Concomitant]
     Route: 048
  4. PARACETAMOL [Concomitant]
     Route: 048
  5. IBUPROFEN [Concomitant]
     Route: 048

REACTIONS (1)
  - DERMATITIS ALLERGIC [None]
